FAERS Safety Report 5460769-4 (Version None)
Quarter: 2007Q3

REPORT INFORMATION
  Report Type: 
  Country: None (occurrence: None)
  Receive Date: 20070918
  Receipt Date: 20070904
  Transmission Date: 20080115
  Serious: Yes (Other)
  Sender: FDA-Public Use
  Company Number: 161116ISR

PATIENT
  Age: 68 Year
  Sex: Female

DRUGS (2)
  1. NASALIDE [Suspect]
     Indication: RHINITIS ALLERGIC
     Dosage: 300 MCG (50 MCG, 6 IN 1 D), NASAL
     Route: 045
     Dates: start: 20020101, end: 20070821
  2. BETAMETHASONE [Concomitant]

REACTIONS (6)
  - ASTHENIA [None]
  - BLOOD CORTICOTROPHIN DECREASED [None]
  - BLOOD CORTISOL DECREASED [None]
  - HYPOKALAEMIA [None]
  - HYPOTENSION [None]
  - MUSCLE SPASMS [None]
